FAERS Safety Report 7668082-1 (Version None)
Quarter: 2011Q3

REPORT INFORMATION
  Report Type: 
  Country: None (occurrence: None)
  Receive Date: 20110808
  Receipt Date: 20110805
  Transmission Date: 20111222
  Serious: No
  Sender: FDA-Public Use
  Company Number: US-PFIZER INC-2011180038

PATIENT
  Sex: Male

DRUGS (4)
  1. GEODON [Suspect]
     Dosage: UNK
     Route: 048
  2. CARBAMAZEPINE [Concomitant]
     Dosage: 200 MG, UNK
  3. FLUOXETINE [Concomitant]
     Dosage: 20 MG, UNK
  4. PROVIGIL [Concomitant]
     Dosage: UNK

REACTIONS (2)
  - DRUG INEFFECTIVE [None]
  - SOMNOLENCE [None]
